FAERS Safety Report 16278790 (Version 7)
Quarter: 2019Q3

REPORT INFORMATION
  Report Type: Spontaneous
  Country: DK (occurrence: DK)
  Receive Date: 20190506
  Receipt Date: 20190725
  Transmission Date: 20191004
  Serious: Yes (Other)
  Sender: FDA-Public Use
  Company Number: DK-PFIZER INC-2019188472

PATIENT
  Age: 24 Year
  Sex: Female

DRUGS (2)
  1. LEVONORGESTREL + ETINILESTRADIOL [Suspect]
     Active Substance: ETHINYL ESTRADIOL\LEVONORGESTREL
     Indication: ENDOMETRIOSIS
     Dosage: 150 UG/30 UG, DAILY
     Route: 048
     Dates: start: 201504, end: 2017
  2. LEVONORGESTREL + ETINILESTRADIOL [Suspect]
     Active Substance: ETHINYL ESTRADIOL\LEVONORGESTREL
     Dosage: 150 UG/30 UG, DAILY
     Route: 048
     Dates: start: 20171208, end: 201712

REACTIONS (3)
  - Drug-induced liver injury [Recovering/Resolving]
  - Product use in unapproved indication [Unknown]
  - Off label use [Unknown]
